FAERS Safety Report 21221232 (Version 1)
Quarter: 2022Q3

REPORT INFORMATION
  Report Type: Spontaneous
  Country: FR (occurrence: FR)
  Receive Date: 20220817
  Receipt Date: 20220817
  Transmission Date: 20221026
  Serious: Yes (Hospitalization, Other)
  Sender: FDA-Public Use
  Company Number: FR-AFSSAPS-AVCN20220698

PATIENT
  Age: 47 Year
  Sex: Male

DRUGS (6)
  1. DIAZEPAM [Suspect]
     Active Substance: DIAZEPAM
     Indication: Product used for unknown indication
     Dosage: 10 TABLETSDIAZEPAM 10MG I.E. 100MG
     Route: 048
     Dates: start: 20210630, end: 20210630
  2. GABAPENTIN [Suspect]
     Active Substance: GABAPENTIN
     Indication: Product used for unknown indication
     Dosage: 10 GABAPENTIN CAPSULES 300MG OR 3G
     Route: 048
     Dates: start: 20210630, end: 20210630
  3. OXYCODONE [Suspect]
     Active Substance: OXYCODONE
     Indication: Product used for unknown indication
     Dosage: 24 TABLETSOXYCODONE 5MG OR 120MG
     Route: 048
     Dates: start: 20210630, end: 20210630
  4. ACETAMINOPHEN [Suspect]
     Active Substance: ACETAMINOPHEN
     Indication: Product used for unknown indication
     Dosage: 16 GRAM
     Route: 048
     Dates: start: 20210630, end: 20210630
  5. TOBACCO LEAF [Suspect]
     Active Substance: TOBACCO LEAF
     Indication: Product used for unknown indication
     Dosage: 40 CIGARETTES A DAY
  6. ACUPAN [Suspect]
     Active Substance: NEFOPAM HYDROCHLORIDE
     Indication: Product used for unknown indication
     Dosage: 10 AMPOULES SOIT 200MG
     Route: 048
     Dates: start: 20210630, end: 20210630

REACTIONS (10)
  - Renal failure [Recovered/Resolved]
  - Hypoventilation [Recovered/Resolved]
  - Rhabdomyolysis [Recovered/Resolved]
  - Pneumonia aspiration [Recovered/Resolved]
  - Consciousness fluctuating [Recovered/Resolved]
  - Hepatic cytolysis [Recovering/Resolving]
  - Drug abuse [Not Recovered/Not Resolved]
  - Miosis [Recovered/Resolved]
  - Tachycardia [Recovered/Resolved]
  - Toxicity to various agents [Recovered/Resolved]

NARRATIVE: CASE EVENT DATE: 20210630
